FAERS Safety Report 4656959-0 (Version None)
Quarter: 2005Q2

REPORT INFORMATION
  Report Type: 
  Country: None (occurrence: None)
  Receive Date: 20050506
  Receipt Date: 20050422
  Transmission Date: 20051028
  Serious: Yes (Hospitalization)
  Sender: FDA-Public Use
  Company Number: 106456ISR

PATIENT
  Age: 70 Year
  Sex: Male

DRUGS (3)
  1. METHOTREXATE [Suspect]
     Indication: RHEUMATOID ARTHRITIS
     Dosage: 10 MILLIGRAM QW
     Route: 048
     Dates: start: 19950615
  2. ENBREL [Suspect]
     Dosage: 25 MILLIGRAM 2XWK
     Route: 058
     Dates: start: 20031015, end: 20041111
  3. PREDNISONE [Suspect]
     Dosage: 8 MILLIGRAM
     Route: 048

REACTIONS (3)
  - ENTEROCOCCAL SEPSIS [None]
  - PROSTATISM [None]
  - SEPTIC SHOCK [None]
